FAERS Safety Report 8841397 (Version 2)
Quarter: 2012Q4

REPORT INFORMATION
  Report Type: 
  Country: US (occurrence: US)
  Receive Date: 20121015
  Receipt Date: 20121030
  Transmission Date: 20130627
  Serious: Yes (Death, Hospitalization, Other)
  Sender: FDA-Public Use
  Company Number: US-ASTELLAS-2012US010066

PATIENT
  Age: 59 Year
  Sex: Male
  Weight: 106 kg

DRUGS (6)
  1. PROGRAF [Suspect]
     Indication: HEART TRANSPLANT
     Dosage: 2 mg in morning; 3.5 mg in evening
     Route: 048
     Dates: start: 20040722
  2. PROGRAF [Suspect]
     Dosage: 2 mg, bid
     Route: 048
  3. PROGRAF [Suspect]
     Dosage: UNK
     Route: 048
     Dates: end: 20121016
  4. AZITHROMYCIN [Suspect]
     Indication: UPPER RESPIRATORY TRACT INFECTION
     Dosage: UNK
     Route: 065
  5. PREDNISONE [Concomitant]
     Indication: HEART TRANSPLANT
     Dosage: UNK
     Route: 065
  6. MYCOPHENOLATE MOFETIL [Concomitant]
     Indication: HEART TRANSPLANT
     Dosage: UNK
     Route: 065

REACTIONS (40)
  - Pulmonary embolism [Unknown]
  - Hospitalisation [Unknown]
  - Chronic obstructive pulmonary disease [Not Recovered/Not Resolved]
  - Mediastinal disorder [Unknown]
  - Cerebral ischaemia [Unknown]
  - Atrioventricular block complete [Unknown]
  - Sleep apnoea syndrome [Not Recovered/Not Resolved]
  - Thoracotomy [Unknown]
  - Deep vein thrombosis [Unknown]
  - Deep vein thrombosis [Unknown]
  - Gout [Unknown]
  - Renal failure chronic [Unknown]
  - Renal failure acute [Unknown]
  - Cytomegalovirus viraemia [Unknown]
  - Emphysema [Not Recovered/Not Resolved]
  - Pneumonia [Unknown]
  - Syncope [Unknown]
  - Cardiac disorder [Unknown]
  - Renal disorder [Unknown]
  - Ventricular tachycardia [Unknown]
  - Atrial tachycardia [Unknown]
  - Left ventricular hypertrophy [Unknown]
  - Cardio-respiratory arrest [Fatal]
  - Thrombophlebitis superficial [Unknown]
  - Prostatic specific antigen increased [Unknown]
  - Hypercalcaemia [Unknown]
  - Blister [Unknown]
  - Prostatitis [Unknown]
  - Varicella virus test positive [Unknown]
  - Simplex virus test positive [Unknown]
  - Proteinuria [Unknown]
  - Upper respiratory tract infection [Unknown]
  - Anaemia [Unknown]
  - Anxiety disorder [Unknown]
  - Prostatitis [Unknown]
  - Hyperkalaemia [Unknown]
  - Hyperphosphataemia [Unknown]
  - Sinus tachycardia [Unknown]
  - Tremor [Unknown]
  - Wound infection [Unknown]
